FAERS Safety Report 9351697 (Version 3)
Quarter: 2014Q1

REPORT INFORMATION
  Report Type: Spontaneous
  Country: GB (occurrence: GB)
  Receive Date: 20130617
  Receipt Date: 20140131
  Transmission Date: 20141002
  Serious: Yes (Hospitalization)
  Sender: FDA-Public Use
  Company Number: GB-ACTAVIS-2013-10937

PATIENT
  Age: 69 Year
  Sex: Female
  Weight: 53 kg

DRUGS (10)
  1. DOCETAXEL (UNKNOWN) [Suspect]
     Indication: BREAST CANCER
     Dosage: 112 MG, DAILY
     Route: 065
     Dates: start: 20130501, end: 20130522
  2. DOCETAXEL (UNKNOWN) [Suspect]
     Dosage: 80 MG, DAILY
     Route: 065
     Dates: start: 20130523
  3. PERTUZUMAB [Concomitant]
     Indication: BREAST CANCER METASTATIC
     Dosage: 840 MG, CYCLICAL
     Route: 042
     Dates: start: 20130501
  4. TRASTUZUMAB [Concomitant]
     Indication: BREAST CANCER
     Dosage: 420 MG, DAILY
     Route: 042
     Dates: start: 20130501
  5. ONDANSETRON [Concomitant]
     Indication: PRODUCT USED FOR UNKNOWN INDICATION
     Dosage: 8 MG, TOTAL
     Route: 065
     Dates: start: 20130501, end: 20130501
  6. DEXAMETHASONE [Concomitant]
     Indication: PRODUCT USED FOR UNKNOWN INDICATION
     Dosage: 8 MG, DAILY
     Route: 065
     Dates: start: 20130501, end: 20130503
  7. METOCLOPRAMIDE [Concomitant]
     Indication: PRODUCT USED FOR UNKNOWN INDICATION
     Dosage: 10 MG, PRN
     Route: 065
     Dates: start: 20130501, end: 20130501
  8. PROCHLORPERAZINE [Concomitant]
     Indication: PRODUCT USED FOR UNKNOWN INDICATION
     Dosage: 5 MG, PRN
     Route: 065
     Dates: start: 20130501, end: 20130501
  9. LOPERAMIDE [Concomitant]
     Indication: PRODUCT USED FOR UNKNOWN INDICATION
     Dosage: 8 MG, UNKNOWN
     Route: 065
     Dates: start: 20130517, end: 20130622
  10. AUGMENTIN [Concomitant]
     Indication: PRODUCT USED FOR UNKNOWN INDICATION
     Dosage: 750 MG, UNKNOWN
     Route: 065
     Dates: start: 20130716, end: 20130722

REACTIONS (1)
  - Neutropenic sepsis [Recovered/Resolved]
